FAERS Safety Report 12316435 (Version 1)
Quarter: 2016Q2

REPORT INFORMATION
  Report Type: Spontaneous
  Country: US (occurrence: US)
  Receive Date: 20160429
  Receipt Date: 20160429
  Transmission Date: 20160815
  Serious: Yes (Hospitalization, Other)
  Sender: FDA-Public Use
  Company Number: US-EMD SERONO-232850K07USA

PATIENT
  Age: 53 Year
  Sex: Female
  Weight: 95 kg

DRUGS (13)
  1. REBIF [Suspect]
     Active Substance: INTERFERON BETA-1A
     Route: 058
     Dates: start: 20120504
  2. REBIF [Suspect]
     Active Substance: INTERFERON BETA-1A
     Indication: MULTIPLE SCLEROSIS
     Route: 058
     Dates: start: 200312, end: 200712
  3. ADVIL [Concomitant]
     Active Substance: IBUPROFEN
     Indication: TEMPOROMANDIBULAR JOINT SYNDROME
  4. REBIF [Suspect]
     Active Substance: INTERFERON BETA-1A
     Route: 058
     Dates: start: 200801, end: 200803
  5. REBIF [Suspect]
     Active Substance: INTERFERON BETA-1A
     Route: 058
     Dates: start: 20080401
  6. REBIF [Suspect]
     Active Substance: INTERFERON BETA-1A
     Route: 058
     Dates: start: 20140624
  7. ADVIL [Concomitant]
     Active Substance: IBUPROFEN
     Indication: ARTHRITIS
  8. CYTOMEL [Concomitant]
     Active Substance: LIOTHYRONINE SODIUM
     Indication: THYROID DISORDER
  9. CYTOMEL [Concomitant]
     Active Substance: LIOTHYRONINE SODIUM
     Indication: ASTHENIA
  10. FOLIC ACID. [Concomitant]
     Active Substance: FOLIC ACID
     Indication: MULTIPLE SCLEROSIS
     Route: 065
  11. ADVIL [Concomitant]
     Active Substance: IBUPROFEN
     Indication: PREMEDICATION
  12. ADVIL [Concomitant]
     Active Substance: IBUPROFEN
     Indication: BURSITIS
  13. VITAMIN D [Concomitant]
     Active Substance: CHOLECALCIFEROL
     Indication: MULTIPLE SCLEROSIS
     Route: 065

REACTIONS (7)
  - Colon cancer [Not Recovered/Not Resolved]
  - Crohn^s disease [Unknown]
  - Abdominal hernia [Not Recovered/Not Resolved]
  - Colitis ulcerative [Recovering/Resolving]
  - Asthenia [Unknown]
  - Injection site pain [Unknown]
  - Depression [Unknown]

NARRATIVE: CASE EVENT DATE: 200406
